FAERS Safety Report 8549358-2 (Version None)
Quarter: 2012Q3

REPORT INFORMATION
  Report Type: 
  Country: None (occurrence: None)
  Receive Date: 20120730
  Receipt Date: 20120724
  Transmission Date: 20120928
  Serious: Yes (Hospitalization)
  Sender: FDA-Public Use
  Company Number: ES-AMGEN-ESPSP2012040986

PATIENT
  Age: 84 Year
  Sex: Female

DRUGS (2)
  1. CINACALCET HYDROCHLORIDE [Suspect]
     Indication: HYPERPARATHYROIDISM PRIMARY
     Dosage: 30 MG, QD
     Dates: start: 20120501
  2. CINACALCET HYDROCHLORIDE [Suspect]
     Dosage: 30 MG, Q12H

REACTIONS (3)
  - SURGERY [None]
  - HYPERCALCAEMIA [None]
  - DRUG INEFFECTIVE [None]
